FAERS Safety Report 8896008 (Version 4)
Quarter: 2013Q2

REPORT INFORMATION
  Report Type: Report from Study
  Country: DE (occurrence: DE)
  Receive Date: 20121107
  Receipt Date: 20130520
  Transmission Date: 20140414
  Serious: Yes (Hospitalization)
  Sender: FDA-Public Use
  Company Number: DE-BAXTER-2012BAX022247

PATIENT
  Age: 59 Year
  Sex: Female
  Weight: 108 kg

DRUGS (4)
  1. ENDOXAN 1G [Suspect]
     Indication: BREAST CANCER
     Route: 042
     Dates: start: 20120824, end: 20121002
  2. EPIRUBICIN [Suspect]
     Indication: BREAST CANCER
     Dates: start: 20120824, end: 20121015
  3. EPIRUBICIN [Suspect]
     Route: 042
     Dates: start: 20121031
  4. RAMIPRIL [Concomitant]
     Indication: PRODUCT USED FOR UNKNOWN INDICATION
     Route: 065
     Dates: start: 20110802

REACTIONS (1)
  - Wound infection [Recovered/Resolved]
